FAERS Safety Report 11751802 (Version 1)
Quarter: 2015Q4

REPORT INFORMATION
  Report Type: Spontaneous
  Country: US (occurrence: US)
  Receive Date: 20151118
  Receipt Date: 20151118
  Transmission Date: 20160304
  Serious: Yes (Life-Threatening, Hospitalization)
  Sender: FDA-Public Use
  Company Number: US-PFIZER INC-2015388292

PATIENT
  Age: 42 Year
  Sex: Female

DRUGS (2)
  1. MISOPROSTOL. [Suspect]
     Active Substance: MISOPROSTOL
     Indication: THERAPEUTIC PROCEDURE
     Dosage: 200 UG, SINGLE (ONCE IN PREPARATION FOR A GYNECOLOGIC PROCEDURE)
     Route: 060
  2. NORETHINDRONE. [Concomitant]
     Active Substance: NORETHINDRONE
     Indication: THERAPEUTIC PROCEDURE
     Dosage: 0.35 MG, DAILY

REACTIONS (6)
  - Arteriospasm coronary [Recovered/Resolved]
  - Myocardial infarction [Unknown]
  - Cardiac arrest [Recovered/Resolved]
  - Product use issue [Unknown]
  - Circulatory collapse [Recovered/Resolved]
  - Ventricular fibrillation [Recovered/Resolved]
